FAERS Safety Report 8308855-5 (Version None)
Quarter: 2012Q2

REPORT INFORMATION
  Report Type: 
  Country: None (occurrence: None)
  Receive Date: 20120424
  Receipt Date: 20120420
  Transmission Date: 20120825
  Serious: Yes (Death)
  Sender: FDA-Public Use
  Company Number: US-PFIZER INC-2012065333

PATIENT
  Age: 48 Year
  Sex: Male

DRUGS (5)
  1. NORVASC [Concomitant]
     Indication: HYPERTENSION
     Dosage: 5 MG, 2X/DAY
  2. ADVIL PM [Suspect]
     Indication: SLEEP DISORDER
     Dosage: UNK, AS NEEDED
     Route: 048
  3. NAPROXEN (ALEVE) [Suspect]
     Indication: BACK PAIN
     Dosage: 220 MG, AS NEEDED
     Route: 048
  4. ADVIL PM [Suspect]
     Dosage: 2 TABLETS
  5. NAPROXEN (ALEVE) [Suspect]
     Dosage: 440 MG, UNK
     Route: 048

REACTIONS (4)
  - MALAISE [None]
  - DEATH [None]
  - GLOSSODYNIA [None]
  - BURNING SENSATION [None]
